FAERS Safety Report 21294003 (Version 8)
Quarter: 2022Q4

REPORT INFORMATION
  Report Type: Report from Study
  Country: IT (occurrence: IT)
  Receive Date: 20220905
  Receipt Date: 20221102
  Transmission Date: 20230113
  Serious: Yes (Hospitalization)
  Sender: FDA-Public Use
  Company Number: IT-GLAXOSMITHKLINE-IT2022GSK125113

PATIENT

DRUGS (5)
  1. NIRAPARIB [Suspect]
     Active Substance: NIRAPARIB
     Indication: Squamous cell carcinoma of head and neck
     Dosage: 200 MG, QD
     Route: 048
     Dates: start: 20220726, end: 20220803
  2. CARBAMAZEPINE [Concomitant]
     Active Substance: CARBAMAZEPINE
     Indication: Epilepsy
     Dosage: 4000 MG
     Dates: start: 1998
  3. IBUPROFEN [Concomitant]
     Active Substance: IBUPROFEN
     Indication: Pain
     Dosage: 600 MG
     Dates: start: 20220722
  4. ACETAMINOPHEN [Concomitant]
     Active Substance: ACETAMINOPHEN
     Indication: Pain
     Dosage: 1 G
     Dates: start: 20220727
  5. PREDNISONE [Concomitant]
     Active Substance: PREDNISONE
     Indication: Pain
     Dosage: 25 MG
     Dates: start: 20220824, end: 20220827

REACTIONS (2)
  - Blood creatine phosphokinase MB abnormal [Recovering/Resolving]
  - Troponin abnormal [Recovering/Resolving]

NARRATIVE: CASE EVENT DATE: 20220828
